FAERS Safety Report 18193826 (Version 1)
Quarter: 2020Q3

REPORT INFORMATION
  Report Type: Spontaneous
  Country: US (occurrence: US)
  Receive Date: 20200825
  Receipt Date: 20200825
  Transmission Date: 20201103
  Serious: No
  Sender: FDA-Public Use
  Company Number: US-ROCHE-2365035

PATIENT
  Age: 60 Year
  Sex: Male
  Weight: 72.64 kg

DRUGS (2)
  1. PEGASYS [Suspect]
     Active Substance: PEGINTERFERON ALFA-2A
     Indication: PRODUCT USED FOR UNKNOWN INDICATION
     Dosage: (PREFILLED SYRINGE (180 MCG/0.5 ML))
     Route: 065
  2. PEGASYS [Suspect]
     Active Substance: PEGINTERFERON ALFA-2A
     Route: 065

REACTIONS (2)
  - No adverse event [Unknown]
  - Product dose omission issue [Unknown]

NARRATIVE: CASE EVENT DATE: 20190723
